FAERS Safety Report 6095387-0 (Version None)
Quarter: 2009Q1

REPORT INFORMATION
  Report Type: 
  Country: None (occurrence: None)
  Receive Date: 20090227
  Receipt Date: 20080514
  Transmission Date: 20090719
  Serious: Yes (Life-Threatening, Hospitalization)
  Sender: FDA-Public Use
  Company Number: A0716785A

PATIENT
  Age: 55 Year
  Sex: Male
  Weight: 75.9 kg

DRUGS (6)
  1. LAMICTAL [Suspect]
     Indication: BIPOLAR DISORDER
     Dosage: 50MG PER DAY
     Route: 048
     Dates: start: 20080115, end: 20080206
  2. ALLEGRA [Concomitant]
  3. XANAX [Concomitant]
  4. LIPITOR [Concomitant]
  5. METFORMIN [Concomitant]
  6. ANAFRANIL [Concomitant]

REACTIONS (5)
  - ERYTHEMA [None]
  - FATIGUE [None]
  - OROPHARYNGEAL PAIN [None]
  - RASH [None]
  - SKIN EXFOLIATION [None]
